FAERS Safety Report 4604677-7 (Version None)
Quarter: 2005Q2

REPORT INFORMATION
  Report Type: 
  Country: None (occurrence: None)
  Receive Date: 20050223
  Receipt Date: 20041112
  Transmission Date: 20051028
  Serious: No
  Sender: FDA-Public Use
  Company Number: PHEH2004US12267

PATIENT
  Age: 50 Year
  Sex: Female

DRUGS (3)
  1. ZELNORM [Suspect]
     Indication: IRRITABLE BOWEL SYNDROME
     Dosage: 6 MG, BID, ORAL
     Route: 048
     Dates: start: 20030101
  2. CITRUCEL (METHYLCELLULOSE) [Concomitant]
  3. MIRALAX [Concomitant]

REACTIONS (1)
  - GLOSSODYNIA [None]
